FAERS Safety Report 12698821 (Version 3)
Quarter: 2016Q4

REPORT INFORMATION
  Report Type: Spontaneous
  Country: US (occurrence: US)
  Receive Date: 20160830
  Receipt Date: 20161018
  Transmission Date: 20170207
  Serious: No
  Sender: FDA-Public Use
  Company Number: US-GLAXOSMITHKLINE-US2016120363

PATIENT
  Age: 59 Year
  Sex: Female

DRUGS (7)
  1. VITAMIN C [Concomitant]
     Active Substance: ASCORBIC ACID
  2. BONINE [Concomitant]
     Active Substance: MECLIZINE HYDROCHLORIDE
  3. MAXZIDE [Concomitant]
     Active Substance: HYDROCHLOROTHIAZIDE\TRIAMTERENE
  4. ADVAIR DISKUS [Suspect]
     Active Substance: FLUTICASONE PROPIONATE\SALMETEROL XINAFOATE
     Indication: ASTHMA
     Dosage: 1 PUFF(S), QD
     Route: 055
     Dates: start: 2004
  5. KELP [Concomitant]
     Active Substance: KELP
  6. MAGNESIUM [Concomitant]
     Active Substance: MAGNESIUM
  7. VENTOLIN [Concomitant]
     Active Substance: ALBUTEROL SULFATE

REACTIONS (9)
  - Upper respiratory tract infection [Unknown]
  - Drug prescribing error [Unknown]
  - Depression [Unknown]
  - Vitamin D deficiency [Recovering/Resolving]
  - Bone density decreased [Recovering/Resolving]
  - Vitamin D decreased [Not Recovered/Not Resolved]
  - Osteopenia [Unknown]
  - Upper limb fracture [Unknown]
  - Intentional underdose [Unknown]

NARRATIVE: CASE EVENT DATE: 201403
